FAERS Safety Report 7341169-9 (Version None)
Quarter: 2011Q1

REPORT INFORMATION
  Report Type: 
  Country: None (occurrence: None)
  Receive Date: 20110309
  Receipt Date: 20110307
  Transmission Date: 20110831
  Serious: Yes (Other)
  Sender: FDA-Public Use
  Company Number: B0700655A

PATIENT
  Sex: Male

DRUGS (5)
  1. LEVODOPA [Suspect]
     Dosage: 1400MG PER DAY
     Route: 065
  2. AMANTADINE HCL [Concomitant]
     Dosage: 100MG PER DAY
  3. ENTACAPONE [Concomitant]
     Dosage: 200MG FOUR TIMES PER DAY
  4. REQUIP XL [Suspect]
     Indication: PARKINSON'S DISEASE
     Route: 048
     Dates: start: 20090201, end: 20110217
  5. REQUIP [Suspect]
     Indication: PARKINSON'S DISEASE
     Route: 048
     Dates: start: 20000401, end: 20090201

REACTIONS (5)
  - SEXUAL ABUSE [None]
  - OBSESSIVE-COMPULSIVE DISORDER [None]
  - SOMNOLENCE [None]
  - HYPERSEXUALITY [None]
  - LIBIDO INCREASED [None]
